FAERS Safety Report 21501372 (Version 1)
Quarter: 2022Q4

REPORT INFORMATION
  Report Type: Report from Study
  Country: US (occurrence: US)
  Receive Date: 20221025
  Receipt Date: 20221025
  Transmission Date: 20230112
  Serious: No
  Sender: FDA-Public Use
  Company Number: US-ABBVIE-4164528

PATIENT
  Age: 48 Year
  Sex: Female

DRUGS (1)
  1. SKYRIZI [Suspect]
     Active Substance: RISANKIZUMAB-RZAA
     Indication: Psoriasis
     Route: 058
     Dates: start: 20211208

REACTIONS (5)
  - Chest discomfort [Unknown]
  - Erythema [Unknown]
  - Therapeutic response shortened [Unknown]
  - Cough [Unknown]
  - Dry skin [Unknown]

NARRATIVE: CASE EVENT DATE: 20221011
